FAERS Safety Report 10041671 (Version 2)
Quarter: 2014Q2

REPORT INFORMATION
  Report Type: Spontaneous
  Country: US (occurrence: US)
  Receive Date: 20140327
  Receipt Date: 20140612
  Transmission Date: 20141212
  Serious: Yes (Hospitalization, Other)
  Sender: FDA-Public Use
  Company Number: US-SA-2014SA036949

PATIENT
  Age: 45 Year
  Sex: Female
  Weight: 76.2 kg

DRUGS (5)
  1. AUBAGIO [Suspect]
     Indication: MULTIPLE SCLEROSIS
     Route: 065
     Dates: start: 20130611
  2. PRILOSEC [Concomitant]
     Indication: DYSPEPSIA
     Dates: start: 2007
  3. REQUIP [Concomitant]
     Indication: RESTLESS LEGS SYNDROME
     Dates: start: 2011
  4. ZANAFLEX [Concomitant]
     Indication: MUSCLE SPASMS
     Dates: start: 2012
  5. GABAPENTIN [Concomitant]
     Indication: NEURALGIA
     Dates: start: 2013

REACTIONS (2)
  - Crohn^s disease [Not Recovered/Not Resolved]
  - Hepatic enzyme increased [Not Recovered/Not Resolved]
